FAERS Safety Report 21841439 (Version 21)
Quarter: 2024Q4

REPORT INFORMATION
  Report Type: Spontaneous
  Country: CA (occurrence: CA)
  Receive Date: 20230110
  Receipt Date: 20241217
  Transmission Date: 20250115
  Serious: Yes (Hospitalization, Other)
  Sender: CELLTRION
  Company Number: CA-CELLTRION INC.-2022CA021764

PATIENT

DRUGS (17)
  1. INFLECTRA [Suspect]
     Active Substance: INFLIXIMAB-DYYB
     Indication: Crohn^s disease
     Dosage: 10 MG/KG (INDUCTION: 10 MG/KG, THEN 5 MG/KG Q 8 WEEKS (WEEK 0)) 1DF
     Route: 042
     Dates: start: 20221214
  2. INFLECTRA [Suspect]
     Active Substance: INFLIXIMAB-DYYB
     Dosage: 10 MG/KG (INDUCTION: 10 MG/KG, THEN 5 MG/KG Q 8 WEEKS) (WEEK 2)
     Route: 042
     Dates: start: 20221230
  3. INFLECTRA [Suspect]
     Active Substance: INFLIXIMAB-DYYB
     Dosage: 880 MG, WEEK 6 DOSE (INDUCTION: 10MG/KG, THEN 5MG/KG Q8 WEEKS)
     Route: 042
     Dates: start: 20230126
  4. INFLECTRA [Suspect]
     Active Substance: INFLIXIMAB-DYYB
     Dosage: 450MG (5MG/KG) Q 7 WEEKS AND 5 DAYS
     Route: 042
     Dates: start: 20230321
  5. INFLECTRA [Suspect]
     Active Substance: INFLIXIMAB-DYYB
     Dosage: 5 MG/KG, EVERY 8 WEEKS
     Route: 042
     Dates: start: 20230518
  6. INFLECTRA [Suspect]
     Active Substance: INFLIXIMAB-DYYB
     Dosage: 435 MG (5MG/KG), EVERY 8 WEEKS
     Route: 042
     Dates: start: 20230713, end: 20230713
  7. INFLECTRA [Suspect]
     Active Substance: INFLIXIMAB-DYYB
     Dosage: 5 MG/KG, EVERY 8 WEEKS
     Route: 042
     Dates: start: 20231102
  8. INFLECTRA [Suspect]
     Active Substance: INFLIXIMAB-DYYB
     Dosage: 5MG/KG (480MG), EVERY 8 WEEKS (1DF, INDUCTION: 10MG/KG, THEN 5MG/KG Q8 WEEKS)
     Route: 042
     Dates: start: 20231228
  9. INFLECTRA [Suspect]
     Active Substance: INFLIXIMAB-DYYB
     Dosage: 5MG/KG, EVERY 6 WEEKS (480MG AFTER 8 WEEKS)
     Route: 042
     Dates: start: 20240222
  10. INFLECTRA [Suspect]
     Active Substance: INFLIXIMAB-DYYB
     Dosage: 5 MG/KG, EVERY 6 WEEKS (490 MG, 5MG/KG, EVERY 6 WEEKS)
     Route: 042
     Dates: start: 20240405
  11. INFLECTRA [Suspect]
     Active Substance: INFLIXIMAB-DYYB
     Dosage: 5 MG/KG, EVERY 6 WEEKS (455 MG AFTER 5 WEEKS AND 5 DAYS)
     Route: 042
     Dates: start: 20240515
  12. INFLECTRA [Suspect]
     Active Substance: INFLIXIMAB-DYYB
     Dosage: 440 MG, (5MG/KG, EVERY 6 WEEKS)
     Route: 042
     Dates: start: 20240626
  13. INFLECTRA [Suspect]
     Active Substance: INFLIXIMAB-DYYB
     Dosage: 425 MG, AFTER 5 WEEKS AND 1 DAY (5 MG/KG, EVERY 6 WEEKS)
     Route: 042
     Dates: start: 20240801
  14. INFLECTRA [Suspect]
     Active Substance: INFLIXIMAB-DYYB
     Dosage: 425 MG, 7 WEEKS (MG/KG, EVERY 6 WEEKS)
     Route: 042
     Dates: start: 20240916
  15. INFLECTRA [Suspect]
     Active Substance: INFLIXIMAB-DYYB
     Dosage: 440 MG AFTER 8 WEEKS (5 MG/KG EVERY 6 WEEKS)
     Route: 042
     Dates: start: 20241025
  16. INFLECTRA [Suspect]
     Active Substance: INFLIXIMAB-DYYB
     Dosage: 460 MG, AFTER 6 WEEKS (5 MG/KG EVERY 6 WEEKS)
     Route: 042
     Dates: start: 20241206
  17. PREDNISONE [Concomitant]
     Active Substance: PREDNISONE
     Dosage: 1 DF
     Route: 065

REACTIONS (24)
  - Muscle spasms [Recovered/Resolved]
  - Back pain [Recovered/Resolved]
  - Anxiety [Recovering/Resolving]
  - Asthenia [Recovering/Resolving]
  - Fatigue [Recovering/Resolving]
  - Dizziness [Recovering/Resolving]
  - Reflux gastritis [Recovering/Resolving]
  - Nausea [Recovering/Resolving]
  - Anal fissure [Recovered/Resolved]
  - Viral infection [Unknown]
  - Pyrexia [Not Recovered/Not Resolved]
  - Arthralgia [Not Recovered/Not Resolved]
  - Malaise [Not Recovered/Not Resolved]
  - Rhinorrhoea [Not Recovered/Not Resolved]
  - Oropharyngeal pain [Not Recovered/Not Resolved]
  - Mouth ulceration [Recovered/Resolved]
  - Muscle spasms [Recovered/Resolved]
  - Defaecation urgency [Unknown]
  - Condition aggravated [Recovered/Resolved]
  - Off label use [Unknown]
  - Off label use [Unknown]
  - Off label use [Unknown]
  - Intentional product use issue [Unknown]
  - Inappropriate schedule of product administration [Unknown]

NARRATIVE: CASE EVENT DATE: 20221201
